FAERS Safety Report 10024212 (Version 1)
Quarter: 2014Q1

REPORT INFORMATION
  Report Type: Spontaneous
  Country: US (occurrence: None)
  Receive Date: 20140318
  Receipt Date: 20140318
  Transmission Date: 20141002
  Serious: Yes (Hospitalization)
  Sender: FDA-Public Use
  Company Number: None

PATIENT
  Age: 71 Year
  Sex: Male
  Weight: 92.5 kg

DRUGS (1)
  1. RIVAROXABAN [Suspect]
     Indication: ATRIAL FIBRILLATION
     Route: 048
     Dates: start: 20130710, end: 20140117

REACTIONS (6)
  - Fall [None]
  - Head injury [None]
  - Contusion [None]
  - Cardiac failure congestive [None]
  - Periorbital haemorrhage [None]
  - Haemorrhage intracranial [None]
